FAERS Safety Report 7906538-4 (Version None)
Quarter: 2011Q4

REPORT INFORMATION
  Report Type: 
  Country: None (occurrence: None)
  Receive Date: 20111110
  Receipt Date: 20111104
  Transmission Date: 20120403
  Serious: Yes (Other)
  Sender: FDA-Public Use
  Company Number: FR-JNJFOC-20111101888

PATIENT
  Age: 77 Year
  Sex: Male

DRUGS (1)
  1. LEVOFLOXACIN [Suspect]
     Indication: EYE DISORDER
     Route: 048
     Dates: start: 20110911, end: 20110911

REACTIONS (3)
  - ARRHYTHMIA [None]
  - OFF LABEL USE [None]
  - TENDONITIS [None]
